FAERS Safety Report 6145184-2 (Version None)
Quarter: 2009Q2

REPORT INFORMATION
  Report Type: 
  Country: None (occurrence: None)
  Receive Date: 20090401
  Receipt Date: 20090319
  Transmission Date: 20091009
  Serious: Yes (Death)
  Sender: FDA-Public Use
  Company Number: S07-IRL-05115-01

PATIENT
  Age: 64 Year
  Sex: Male

DRUGS (4)
  1. LEXAPRO [Suspect]
     Indication: DEPRESSION
     Dosage: 10 MG (10 MG, 1 IN 1 D), ORAL
     Route: 048
     Dates: end: 20070618
  2. PARAQUAT [Suspect]
     Dosage: (ONCE)
     Dates: start: 20070823, end: 20070823
  3. LIPOSTAT (PRAVASTATIN SODIUM) (PRAVASTATIN SODIUM) [Concomitant]
  4. ZISPIN (MIRTAZAPINE) (MIRTAZAPINE) [Concomitant]

REACTIONS (11)
  - BRONCHOPNEUMONIA [None]
  - COMPLETED SUICIDE [None]
  - CORONARY ARTERY DISEASE [None]
  - EXPOSURE TO TOXIC AGENT [None]
  - HEPATIC STEATOSIS [None]
  - INTENTIONAL OVERDOSE [None]
  - LEFT VENTRICULAR HYPERTROPHY [None]
  - LUNG CONSOLIDATION [None]
  - POISONING [None]
  - PULMONARY OEDEMA [None]
  - TOXICOLOGIC TEST ABNORMAL [None]
